FAERS Safety Report 18693935 (Version 4)
Quarter: 2021Q3

REPORT INFORMATION
  Report Type: Spontaneous
  Country: GB (occurrence: NL)
  Receive Date: 20210104
  Receipt Date: 20210712
  Transmission Date: 20211014
  Serious: Yes (Death, Other)
  Sender: FDA-Public Use
  Company Number: GB-MYLANLABS-2020M1106585

PATIENT
  Age: 32 Year
  Sex: Male

DRUGS (24)
  1. GABAPENTIN. [Suspect]
     Active Substance: GABAPENTIN
     Indication: PRODUCT USED FOR UNKNOWN INDICATION
     Dosage: 2.6 MG/L FEMORAL BLOOD
     Route: 065
  2. DHC [Suspect]
     Active Substance: DIHYDROCODEINE BITARTRATE
     Indication: PRODUCT USED FOR UNKNOWN INDICATION
     Dosage: UNK(6413 NG/ML FEMORAL BLOOD)
  3. DIAZEPAM. [Suspect]
     Active Substance: DIAZEPAM
     Dosage: 131 NANOGRAM PER MILLLIITER
  4. AMPHETAMINE SULFATE. [Suspect]
     Active Substance: AMPHETAMINE SULFATE
     Indication: PRODUCT USED FOR UNKNOWN INDICATION
     Dosage: 859 NANOGRAM PER MILLLIITER
     Route: 065
  5. CHLORPHENIRAMINE                   /00072501/ [Suspect]
     Active Substance: CHLORPHENIRAMINE
     Indication: PRODUCT USED FOR UNKNOWN INDICATION
     Dosage: LESS THAN 5 NG/ML FEMORAL BLOOD
     Route: 065
  6. AMITRIPTYLINE [Suspect]
     Active Substance: AMITRIPTYLINE
     Indication: PRODUCT USED FOR UNKNOWN INDICATION
     Dosage: UNK(310 NG/ML FEMORAL BLOOD)
  7. DIAZEPAM. [Suspect]
     Active Substance: DIAZEPAM
     Indication: PRODUCT USED FOR UNKNOWN INDICATION
     Dosage: 107 NANOGRAM PER MILLLIITER
     Route: 065
  8. MORPHINE [Suspect]
     Active Substance: MORPHINE
     Dosage: 34 NANOGRAM PER MILLLIITER
  9. MORPHINE [Suspect]
     Active Substance: MORPHINE
     Dosage: UNK
  10. PREGABALIN. [Suspect]
     Active Substance: PREGABALIN
     Indication: PRODUCT USED FOR UNKNOWN INDICATION
     Dosage: 10.3 MG/L FEMORAL BLOOD
     Route: 065
  11. PARACETAMOL [Suspect]
     Active Substance: ACETAMINOPHEN
     Dosage: UNK
  12. CHLORPHENIRAMINE                   /00072501/ [Suspect]
     Active Substance: CHLORPHENIRAMINE
     Dosage: UNK
  13. AMPHETAMINE SULFATE. [Suspect]
     Active Substance: AMPHETAMINE SULFATE
     Dosage: UNK
  14. ETIZOLAM [Suspect]
     Active Substance: ETIZOLAM
     Indication: PRODUCT USED FOR UNKNOWN INDICATION
     Dosage: 4 NANOGRAM PER MILLLIITER
     Route: 065
  15. HYDROCODONE [Suspect]
     Active Substance: HYDROCODONE
     Indication: PRODUCT USED FOR UNKNOWN INDICATION
     Dosage: UNK(96 NG/ML FEMORAL BLOOD)
  16. GABAPENTIN. [Suspect]
     Active Substance: GABAPENTIN
     Dosage: UNK
  17. ETIZOLAM [Suspect]
     Active Substance: ETIZOLAM
     Dosage: 18 NANOGRAM PER MILLLIITER
     Route: 065
  18. ETIZOLAM [Suspect]
     Active Substance: ETIZOLAM
     Dosage: UNK
  19. PARACETAMOL [Suspect]
     Active Substance: ACETAMINOPHEN
     Indication: PRODUCT USED FOR UNKNOWN INDICATION
     Dosage: UNK, LESS THAN 5000 NG/ML FEMORAL BLOOD
     Route: 065
  20. MORPHINE [Suspect]
     Active Substance: MORPHINE
     Indication: PRODUCT USED FOR UNKNOWN INDICATION
     Dosage: 273 NANOGRAM PER MILLLIITER
  21. PREGABALIN. [Suspect]
     Active Substance: PREGABALIN
     Dosage: UNK(10,200 NG/ML FEMORAL BLOOD)
     Route: 065
  22. PREGABALIN. [Suspect]
     Active Substance: PREGABALIN
     Dosage: UNK
  23. DIAZEPAM. [Suspect]
     Active Substance: DIAZEPAM
     Dosage: UNK
  24. DIHYDROCODEINE [Suspect]
     Active Substance: DIHYDROCODEINE
     Indication: PRODUCT USED FOR UNKNOWN INDICATION
     Dosage: UNK
     Route: 065

REACTIONS (2)
  - Drug abuse [Unknown]
  - Toxicity to various agents [Fatal]
